FAERS Safety Report 15338468 (Version 2)
Quarter: 2019Q3

REPORT INFORMATION
  Report Type: Report from Study
  Country: JP (occurrence: JP)
  Receive Date: 20180831
  Receipt Date: 20190730
  Transmission Date: 20191004
  Serious: Yes (Death, Life-Threatening, Hospitalization)
  Sender: FDA-Public Use
  Company Number: JP-INCYTE CORPORATION-2018IN007046

PATIENT

DRUGS (5)
  1. CYLOCIDE [Concomitant]
     Active Substance: CYTARABINE
     Indication: MYELOFIBROSIS
     Dosage: 330 MG, QD
     Route: 065
     Dates: start: 20171005, end: 20171231
  2. ETOPOSIDE. [Concomitant]
     Active Substance: ETOPOSIDE
     Indication: MYELOFIBROSIS
     Dosage: 330 MG, QD
     Route: 065
     Dates: start: 20171005, end: 20171230
  3. HYDREA [Concomitant]
     Active Substance: HYDROXYUREA
     Indication: MYELOFIBROSIS
     Dosage: 1000 MG, QD
     Route: 048
     Dates: end: 20171005
  4. JAKAVI [Suspect]
     Active Substance: RUXOLITINIB
     Indication: MYELOFIBROSIS
     Dosage: 15 MG, BID
     Route: 048
     Dates: start: 20170609, end: 20171215
  5. VIDAZA [Concomitant]
     Active Substance: AZACITIDINE
     Indication: MYELOFIBROSIS
     Dosage: 120 MG, QD
     Route: 058
     Dates: start: 20170814, end: 20170918

REACTIONS (2)
  - Myelofibrosis [Fatal]
  - Sepsis [Recovered/Resolved]

NARRATIVE: CASE EVENT DATE: 20170610
